FAERS Safety Report 5936961-9 (Version None)
Quarter: 2008Q4

REPORT INFORMATION
  Report Type: 
  Country: None (occurrence: None)
  Receive Date: 20081031
  Receipt Date: 20081021
  Transmission Date: 20090506
  Serious: Yes (Other)
  Sender: FDA-Public Use
  Company Number: FR-BAXTER-2008BH011324

PATIENT
  Age: 55 Year
  Sex: Male

DRUGS (2)
  1. SUPRANE [Suspect]
     Indication: LIPOSUCTION
     Dosage: DOSE UNIT:UNKNOWN
     Route: 055
     Dates: start: 20081020, end: 20081020
  2. PROPOFOL [Concomitant]
     Indication: ANAESTHESIA
     Dates: start: 20081020, end: 20081020

REACTIONS (3)
  - ERYTHEMA [None]
  - OXYGEN SATURATION DECREASED [None]
  - PRURITUS [None]
